FAERS Safety Report 12269009 (Version 2)
Quarter: 2019Q4

REPORT INFORMATION
  Report Type: Spontaneous
  Country: US (occurrence: US)
  Receive Date: 20160414
  Receipt Date: 20191209
  Transmission Date: 20200122
  Serious: Yes (Other)
  Sender: FDA-Public Use
  Company Number: US-PFIZER INC-2016208485

PATIENT
  Age: 71 Year
  Sex: Male

DRUGS (9)
  1. FLOMAX [Concomitant]
     Active Substance: TAMSULOSIN HYDROCHLORIDE
     Dosage: 0.4 MG, 1X/DAY
     Dates: start: 20100217, end: 201003
  2. TYLENOL [Concomitant]
     Active Substance: ACETAMINOPHEN
     Indication: PAIN
     Dosage: UNK, AS NEEDED
     Dates: start: 2014
  3. VIAGRA [Suspect]
     Active Substance: SILDENAFIL CITRATE
     Dosage: UNK, REGULARLY
     Route: 048
     Dates: start: 200605, end: 201506
  4. VIAGRA [Suspect]
     Active Substance: SILDENAFIL CITRATE
     Indication: ERECTILE DYSFUNCTION
     Dosage: 100 MG, THRICE PER WEEK
     Route: 048
     Dates: start: 1998, end: 200605
  5. VIAGRA [Suspect]
     Active Substance: SILDENAFIL CITRATE
     Dosage: 100 MG, THRICE PER WEEK
     Route: 048
     Dates: start: 20100705, end: 201411
  6. CIALIS [Suspect]
     Active Substance: TADALAFIL
     Indication: ERECTILE DYSFUNCTION
     Dosage: 20 MG, THRICE PER WEEK
     Dates: start: 20100705, end: 201104
  7. VIAGRA [Suspect]
     Active Substance: SILDENAFIL CITRATE
     Dosage: 100 MG, THRICE PER WEEK
     Route: 048
     Dates: start: 20060518, end: 200612
  8. FLOMAX [Concomitant]
     Active Substance: TAMSULOSIN HYDROCHLORIDE
     Indication: RENAL DISORDER
     Dosage: 0.4 MG, 1X/DAY
     Dates: start: 20080316, end: 200807
  9. CIALIS [Suspect]
     Active Substance: TADALAFIL
     Indication: CARDIOVASCULAR EVENT PROPHYLAXIS
     Dosage: 20 MG, THRICE PER WEEK
     Route: 048
     Dates: start: 20070301, end: 200802

REACTIONS (6)
  - Malignant melanoma [Recovered/Resolved]
  - Malignant melanoma stage IV [Unknown]
  - Emotional distress [Unknown]
  - Anxiety [Unknown]
  - Superficial spreading melanoma stage unspecified [Unknown]
  - Movement disorder [Unknown]

NARRATIVE: CASE EVENT DATE: 20140402
